FAERS Safety Report 7638402-2 (Version None)
Quarter: 2011Q3

REPORT INFORMATION
  Report Type: 
  Country: None (occurrence: None)
  Receive Date: 20110720
  Receipt Date: 20110712
  Transmission Date: 20111222
  Serious: Yes (Other)
  Sender: FDA-Public Use
  Company Number: 2011SP025948

PATIENT
  Age: 46 Year
  Sex: Male
  Weight: 79.6 kg

DRUGS (4)
  1. TEMOZOLOMIDE [Suspect]
     Indication: MALIGNANT OLIGODENDROGLIOMA
     Dosage: 160 MG, 430 MG,
     Dates: start: 20101223, end: 20110209
  2. TEMOZOLOMIDE [Suspect]
     Indication: MALIGNANT OLIGODENDROGLIOMA
     Dosage: 160 MG, 430 MG,
     Dates: end: 20110514
  3. LEVETIRACETAM [Concomitant]
  4. GRANISETRON [Concomitant]

REACTIONS (14)
  - THROMBOCYTOPENIA [None]
  - MEAN PLATELET VOLUME INCREASED [None]
  - COLD AGGLUTININS POSITIVE [None]
  - MONOCYTE COUNT INCREASED [None]
  - HAEMOGLOBIN DECREASED [None]
  - LEUKOPENIA [None]
  - RETICULOCYTE COUNT DECREASED [None]
  - EAR INFECTION [None]
  - RED BLOOD CELL COUNT DECREASED [None]
  - HAEMATOCRIT DECREASED [None]
  - RED BLOOD CELL ELLIPTOCYTES PRESENT [None]
  - POLYCHROMASIA [None]
  - RED CELL DISTRIBUTION WIDTH INCREASED [None]
  - HERPES SIMPLEX [None]
